FAERS Safety Report 9228823 (Version 3)
Quarter: 2013Q2

REPORT INFORMATION
  Report Type: Spontaneous
  Country: DE (occurrence: DE)
  Receive Date: 20130412
  Receipt Date: 20130625
  Transmission Date: 20140414
  Serious: Yes (Other)
  Sender: FDA-Public Use
  Company Number: DE-NAPPMUNDI-DEU-2013-0011194

PATIENT
  Age: 51 Year
  Sex: Female

DRUGS (7)
  1. OXYGESIC [Suspect]
     Indication: PAIN
     Dosage: 10 MG, BID
     Route: 048
     Dates: start: 20130318, end: 201304
  2. OXYGESIC [Suspect]
     Indication: FIBROMYALGIA
     Dosage: 15 MG, BID
     Route: 048
  3. OXYGESIC [Suspect]
     Indication: BONE PAIN
  4. ANTIEPILEPTICS [Concomitant]
     Indication: EPILEPSY
  5. MOVICOL                            /01625101/ [Concomitant]
  6. DULCOLAX                           /00064401/ [Concomitant]
  7. CORTISONE [Concomitant]

REACTIONS (5)
  - Visual acuity reduced [Recovered/Resolved]
  - Pupillary reflex impaired [Recovered/Resolved]
  - Miosis [Recovered/Resolved]
  - Constipation [Recovered/Resolved]
  - Inadequate analgesia [Recovered/Resolved]
